FAERS Safety Report 8517355-9 (Version None)
Quarter: 2012Q3

REPORT INFORMATION
  Report Type: 
  Country: None (occurrence: None)
  Receive Date: 20120718
  Receipt Date: 20120710
  Transmission Date: 20120928
  Serious: Yes (Hospitalization, Other)
  Sender: FDA-Public Use
  Company Number: SE-JNJFOC-20120607691

PATIENT
  Sex: Female

DRUGS (12)
  1. REMICADE [Suspect]
     Indication: PSORIASIS
     Dosage: CYCLICAL
     Route: 042
     Dates: start: 20110909, end: 20120322
  2. FOLIC ACID [Concomitant]
     Route: 065
  3. OMEPRAZOLE [Concomitant]
     Route: 065
  4. ACETAMINOPHEN [Concomitant]
     Route: 065
  5. KETOPROFEN [Concomitant]
     Route: 065
  6. UNKNOWN MEDICATION [Concomitant]
     Route: 065
  7. METHOTREXATE SODIUM [Concomitant]
     Route: 065
  8. EMOVAT [Concomitant]
     Dosage: DOSE: 0.5MG/ML+ 1MG/ML
     Route: 065
  9. MORPHINE SULFATE [Concomitant]
     Dosage: DOSE: 0.5MG/ML+ 1MG/ML
     Route: 065
  10. DESOGESTREL AND ETHINYL ESTRADIOL [Concomitant]
     Dosage: DOSE: 0.5MG/ML+ 1MG/ML
     Route: 065
  11. MOLLIPECT [Concomitant]
     Dosage: DOSE: 0.5MG/ML AND 1MG/ML
     Route: 048
  12. ARCOXIA [Concomitant]
     Route: 065

REACTIONS (2)
  - HEPATIC STEATOSIS [None]
  - CHRONIC HEPATITIS [None]
